FAERS Safety Report 22180041 (Version 1)
Quarter: 2023Q2

REPORT INFORMATION
  Report Type: Report from Study
  Country: US (occurrence: US)
  Receive Date: 20230406
  Receipt Date: 20230406
  Transmission Date: 20230722
  Serious: Yes (Death, Other)
  Sender: FDA-Public Use
  Company Number: US-UCBSA-2023017433

PATIENT
  Age: 72 Year
  Sex: Male

DRUGS (1)
  1. LACOSAMIDE [Suspect]
     Active Substance: LACOSAMIDE
     Indication: Seizure
     Dosage: 225 MILLIGRAM, 2X/DAY (BID)
     Dates: end: 20230307

REACTIONS (1)
  - Death [Fatal]

NARRATIVE: CASE EVENT DATE: 20230307
